FAERS Safety Report 6448866-8 (Version None)
Quarter: 2009Q4

REPORT INFORMATION
  Report Type: 
  Country: None (occurrence: None)
  Receive Date: 20091120
  Receipt Date: 20091109
  Transmission Date: 20100525
  Serious: Yes (Hospitalization)
  Sender: FDA-Public Use
  Company Number: FR-ELI_LILLY_AND_COMPANY-FR200909002530

PATIENT
  Age: 50 Year
  Sex: Male
  Weight: 73 kg

DRUGS (3)
  1. GEMZAR [Suspect]
     Indication: LUNG NEOPLASM MALIGNANT
     Dosage: 1250 MG/M2, UNKNOWN (DAY ONE OF THREE WEEK CYCLE)
     Route: 042
     Dates: start: 20090818, end: 20090818
  2. GEMZAR [Suspect]
     Dosage: 1250 MG/M2, UNKNOWN (DAY EIGHT OF THREE WEEK CYCLE)
     Route: 042
     Dates: start: 20090825, end: 20090825
  3. CISPLATIN [Concomitant]
     Indication: LUNG NEOPLASM MALIGNANT
     Dosage: 80 MG/M2, UNKNOWN
     Route: 042
     Dates: start: 20090818

REACTIONS (1)
  - THROMBOCYTOSIS [None]
